FAERS Safety Report 22777114 (Version 4)
Quarter: 2023Q4

REPORT INFORMATION
  Report Type: Spontaneous
  Country: KR (occurrence: KR)
  Receive Date: 20230802
  Receipt Date: 20231222
  Transmission Date: 20240110
  Serious: Yes (Life-Threatening, Hospitalization)
  Sender: FDA-Public Use
  Company Number: KR-Accord-370551

PATIENT
  Age: 49 Year
  Sex: Female
  Weight: 51 kg

DRUGS (78)
  1. FLUOROURACIL [Suspect]
     Active Substance: FLUOROURACIL
     Indication: Colorectal cancer
     Dosage: SINGLE DOSE, IV BOLUS
     Route: 042
     Dates: start: 20211116, end: 20211116
  2. OXALIPLATIN [Suspect]
     Active Substance: OXALIPLATIN
     Indication: Colorectal cancer
     Dosage: SINGLE DOSE
     Route: 042
     Dates: start: 20211116, end: 20211116
  3. REGORAFENIB [Concomitant]
     Active Substance: REGORAFENIB
     Indication: Colorectal cancer
     Dosage: SINGLE DOSE
     Route: 048
     Dates: start: 20211001, end: 20211021
  4. LEUCOVORIN [Concomitant]
     Active Substance: LEUCOVORIN\LEUCOVORIN CALCIUM
     Indication: Colorectal cancer
     Dosage: SINGLE DOSE
     Route: 042
     Dates: start: 20211116, end: 20211116
  5. BEVACIZUMAB [Concomitant]
     Active Substance: BEVACIZUMAB
     Indication: Colorectal cancer
     Dosage: SINGLE DOSE
     Route: 042
     Dates: start: 20211116, end: 20211116
  6. FENTANYL [Concomitant]
     Active Substance: FENTANYL\FENTANYL CITRATE
     Dosage: PATCH
     Dates: start: 20211005
  7. FENTANYL [Concomitant]
     Active Substance: FENTANYL\FENTANYL CITRATE
     Dates: start: 20210902
  8. METOCLOPRAMIDE [Concomitant]
     Active Substance: METOCLOPRAMIDE
     Dates: start: 20211206, end: 20220103
  9. TYLENOL [Concomitant]
     Active Substance: ACETAMINOPHEN
     Dates: start: 20211207, end: 20220112
  10. KYMOXIN [Concomitant]
     Dates: start: 20211208
  11. DIETARY SUPPLEMENT\HERBALS\MILK THISTLE [Concomitant]
     Active Substance: MILK THISTLE
     Dates: start: 20211208, end: 20220104
  12. NEXIUM [Concomitant]
     Active Substance: ESOMEPRAZOLE MAGNESIUM
     Dates: start: 20211208, end: 20220125
  13. PREDNISOLONE [Concomitant]
     Active Substance: PREDNISOLONE
     Dates: start: 20211208
  14. URSODIOL [Concomitant]
     Active Substance: URSODIOL
     Dates: start: 20210826
  15. OXYCODONE HYDROCHLORIDE [Concomitant]
     Active Substance: OXYCODONE HYDROCHLORIDE
     Dates: start: 20211220, end: 20220103
  16. NAXEN-F [Concomitant]
     Dates: start: 20210927
  17. MORPHINE SULFATE [Concomitant]
     Active Substance: MORPHINE SULFATE
     Dates: start: 20211220, end: 20220103
  18. HYDROCORTISONE SODIUM SUCCINATE [Concomitant]
     Active Substance: HYDROCORTISONE SODIUM SUCCINATE
     Dates: start: 20220103, end: 20220103
  19. EMEND [Concomitant]
     Active Substance: APREPITANT
     Dates: start: 20211221, end: 20220103
  20. RAMOSETRON HYDROCHLORIDE [Concomitant]
     Active Substance: RAMOSETRON HYDROCHLORIDE
     Dates: start: 20211221, end: 20220103
  21. TANTUM [Concomitant]
     Active Substance: BENZYDAMINE HYDROCHLORIDE
     Dates: start: 20211223
  22. MEGESTROL ACETATE [Concomitant]
     Active Substance: MEGESTROL ACETATE
     Dates: start: 20220104, end: 20220118
  23. LACTULOSE [Concomitant]
     Active Substance: LACTULOSE
     Dates: start: 20220107, end: 20220108
  24. LASIX [Concomitant]
     Active Substance: FUROSEMIDE
     Dates: start: 20211222, end: 20211222
  25. BENZYDAMINE HYDROCHLORIDE [Concomitant]
     Active Substance: BENZYDAMINE HYDROCHLORIDE
     Dates: start: 20211224, end: 20220112
  26. FENTANYL [Concomitant]
     Active Substance: FENTANYL\FENTANYL CITRATE
     Dates: start: 20211109
  27. FREAMINE III NOS [Concomitant]
     Active Substance: AMINO ACIDS
     Dates: start: 20211213, end: 20211213
  28. HEPARIN SODIUM [Concomitant]
     Active Substance: HEPARIN SODIUM
     Dates: start: 20211221, end: 20220105
  29. LACTULOSE [Concomitant]
     Active Substance: LACTULOSE
     Dates: start: 20220107, end: 20220108
  30. REGORAFENIB [Concomitant]
     Active Substance: REGORAFENIB
     Indication: Colorectal cancer
     Dosage: SINGLE DOSE
     Route: 048
     Dates: start: 20211002, end: 20211021
  31. REGORAFENIB [Concomitant]
     Active Substance: REGORAFENIB
     Indication: Colorectal cancer
     Dosage: SINGLE DOSE
     Route: 048
     Dates: start: 20211003, end: 20211021
  32. REGORAFENIB [Concomitant]
     Active Substance: REGORAFENIB
     Indication: Colorectal cancer
     Dosage: SINGLE DOSE
     Route: 048
     Dates: start: 20211005, end: 20211021
  33. REGORAFENIB [Concomitant]
     Active Substance: REGORAFENIB
     Indication: Colorectal cancer
     Dosage: SINGLE DOSE
     Route: 048
     Dates: start: 20211006, end: 20211021
  34. REGORAFENIB [Concomitant]
     Active Substance: REGORAFENIB
     Indication: Colorectal cancer
     Dosage: SINGLE DOSE
     Route: 048
     Dates: start: 20211007, end: 20211021
  35. REGORAFENIB [Concomitant]
     Active Substance: REGORAFENIB
     Indication: Colorectal cancer
     Dosage: SINGLE DOSE
     Route: 048
     Dates: start: 20211008, end: 20211021
  36. REGORAFENIB [Concomitant]
     Active Substance: REGORAFENIB
     Indication: Colorectal cancer
     Dosage: SINGLE DOSE
     Route: 048
     Dates: start: 20211009, end: 20211021
  37. REGORAFENIB [Concomitant]
     Active Substance: REGORAFENIB
     Indication: Colorectal cancer
     Dosage: SINGLE DOSE
     Route: 048
     Dates: start: 20211010, end: 20211021
  38. REGORAFENIB [Concomitant]
     Active Substance: REGORAFENIB
     Indication: Colorectal cancer
     Dosage: SINGLE DOSE
     Route: 048
     Dates: start: 20211011, end: 20211021
  39. REGORAFENIB [Concomitant]
     Active Substance: REGORAFENIB
     Indication: Colorectal cancer
     Dosage: SINGLE DOSE
     Route: 048
     Dates: start: 20211012, end: 20211021
  40. REGORAFENIB [Concomitant]
     Active Substance: REGORAFENIB
     Indication: Colorectal cancer
     Dosage: SINGLE DOSE
     Route: 048
     Dates: start: 20211013, end: 20211021
  41. REGORAFENIB [Concomitant]
     Active Substance: REGORAFENIB
     Indication: Colorectal cancer
     Dosage: SINGLE DOSE
     Route: 048
     Dates: start: 20211014, end: 20211021
  42. REGORAFENIB [Concomitant]
     Active Substance: REGORAFENIB
     Indication: Colorectal cancer
     Dosage: SINGLE DOSE
     Route: 048
     Dates: start: 20211015, end: 20211021
  43. REGORAFENIB [Concomitant]
     Active Substance: REGORAFENIB
     Indication: Colorectal cancer
     Dosage: SINGLE DOSE
     Route: 048
     Dates: start: 20211016, end: 20211021
  44. REGORAFENIB [Concomitant]
     Active Substance: REGORAFENIB
     Indication: Colorectal cancer
     Dosage: SINGLE DOSE
     Route: 048
     Dates: start: 20211017, end: 20211021
  45. REGORAFENIB [Concomitant]
     Active Substance: REGORAFENIB
     Indication: Colorectal cancer
     Dosage: SINGLE DOSE
     Route: 048
     Dates: start: 20211018, end: 20211021
  46. REGORAFENIB [Concomitant]
     Active Substance: REGORAFENIB
     Indication: Colorectal cancer
     Dosage: SINGLE DOSE
     Route: 048
     Dates: start: 20211019, end: 20211021
  47. REGORAFENIB [Concomitant]
     Active Substance: REGORAFENIB
     Indication: Colorectal cancer
     Dosage: SINGLE DOSE
     Route: 048
     Dates: start: 20211020, end: 20211021
  48. REGORAFENIB [Concomitant]
     Active Substance: REGORAFENIB
     Indication: Colorectal cancer
     Dosage: SINGLE DOSE
     Route: 048
     Dates: start: 20211021, end: 20211021
  49. REGORAFENIB [Concomitant]
     Active Substance: REGORAFENIB
     Indication: Colorectal cancer
     Dosage: SINGLE DOSE
     Route: 048
     Dates: start: 20211029, end: 20211109
  50. REGORAFENIB [Concomitant]
     Active Substance: REGORAFENIB
     Indication: Colorectal cancer
     Dosage: SINGLE DOSE
     Route: 048
     Dates: start: 20211030, end: 20211109
  51. REGORAFENIB [Concomitant]
     Active Substance: REGORAFENIB
     Indication: Colorectal cancer
     Dosage: SINGLE DOSE
     Route: 048
     Dates: start: 20211031, end: 20211109
  52. REGORAFENIB [Concomitant]
     Active Substance: REGORAFENIB
     Indication: Colorectal cancer
     Dosage: SINGLE DOSE
     Route: 048
     Dates: start: 20211101, end: 20211109
  53. REGORAFENIB [Concomitant]
     Active Substance: REGORAFENIB
     Indication: Colorectal cancer
     Dosage: SINGLE DOSE
     Route: 048
     Dates: start: 20211102, end: 20211109
  54. REGORAFENIB [Concomitant]
     Active Substance: REGORAFENIB
     Indication: Colorectal cancer
     Dosage: SINGLE DOSE
     Route: 048
     Dates: start: 20211103, end: 20211109
  55. REGORAFENIB [Concomitant]
     Active Substance: REGORAFENIB
     Indication: Colorectal cancer
     Dosage: SINGLE DOSE
     Route: 048
     Dates: start: 20211104, end: 20211109
  56. REGORAFENIB [Concomitant]
     Active Substance: REGORAFENIB
     Indication: Colorectal cancer
     Dosage: SINGLE DOSE
     Route: 048
     Dates: start: 20211105, end: 20211109
  57. REGORAFENIB [Concomitant]
     Active Substance: REGORAFENIB
     Indication: Colorectal cancer
     Dosage: SINGLE DOSE
     Route: 048
     Dates: start: 20211106, end: 20211109
  58. REGORAFENIB [Concomitant]
     Active Substance: REGORAFENIB
     Indication: Colorectal cancer
     Dosage: SINGLE DOSE
     Route: 048
     Dates: start: 20211107, end: 20211109
  59. REGORAFENIB [Concomitant]
     Active Substance: REGORAFENIB
     Indication: Colorectal cancer
     Dosage: SINGLE DOSE
     Route: 048
     Dates: start: 20211108, end: 20211109
  60. REGORAFENIB [Concomitant]
     Active Substance: REGORAFENIB
     Indication: Colorectal cancer
     Dosage: SINGLE DOSE
     Route: 048
     Dates: start: 20211109, end: 20211109
  61. REGORAFENIB [Concomitant]
     Active Substance: REGORAFENIB
     Indication: Colorectal cancer
     Dosage: SINGLE DOSE
     Route: 048
     Dates: start: 20211004, end: 20211021
  62. LEUCOVORIN [Concomitant]
     Active Substance: LEUCOVORIN\LEUCOVORIN CALCIUM
     Indication: Colorectal cancer
     Dosage: SINGLE DOSE
     Route: 042
     Dates: start: 20211206, end: 20211206
  63. LEUCOVORIN [Concomitant]
     Active Substance: LEUCOVORIN\LEUCOVORIN CALCIUM
     Indication: Colorectal cancer
     Dosage: SINGLE DOSE
     Route: 042
     Dates: start: 20211221, end: 20211221
  64. LEUCOVORIN [Concomitant]
     Active Substance: LEUCOVORIN\LEUCOVORIN CALCIUM
     Indication: Colorectal cancer
     Dosage: SINGLE DOSE
     Route: 042
     Dates: start: 20220103, end: 20220103
  65. OXALIPLATIN [Suspect]
     Active Substance: OXALIPLATIN
     Indication: Colorectal cancer
     Dosage: SINGLE DOSE
     Route: 042
     Dates: start: 20211206, end: 20211206
  66. OXALIPLATIN [Suspect]
     Active Substance: OXALIPLATIN
     Indication: Colorectal cancer
     Dosage: SINGLE DOSE
     Route: 042
     Dates: start: 20211221, end: 20211221
  67. OXALIPLATIN [Suspect]
     Active Substance: OXALIPLATIN
     Indication: Colorectal cancer
     Dosage: SINGLE DOSE
     Route: 042
     Dates: start: 20220103, end: 20220103
  68. FLUOROURACIL [Suspect]
     Active Substance: FLUOROURACIL
     Indication: Colorectal cancer
     Dosage: SINGLE DOSE, IV DRIP
     Route: 042
     Dates: start: 20211116, end: 20211116
  69. FLUOROURACIL [Suspect]
     Active Substance: FLUOROURACIL
     Indication: Colorectal cancer
     Dosage: SINGLE DOSE, IV BOLUS
     Route: 042
     Dates: start: 20211206, end: 20211206
  70. FLUOROURACIL [Suspect]
     Active Substance: FLUOROURACIL
     Indication: Colorectal cancer
     Dosage: SINGLE DOSE, IV DRIP
     Route: 042
     Dates: start: 20211206, end: 20211206
  71. FLUOROURACIL [Suspect]
     Active Substance: FLUOROURACIL
     Indication: Colorectal cancer
     Dosage: SINGLE DOSE, IV BOLUS
     Route: 042
     Dates: start: 20211221, end: 20211221
  72. FLUOROURACIL [Suspect]
     Active Substance: FLUOROURACIL
     Indication: Colorectal cancer
     Dosage: SINGLE DOSE, IV DRIP
     Route: 042
     Dates: start: 20211221, end: 20211221
  73. FLUOROURACIL [Suspect]
     Active Substance: FLUOROURACIL
     Indication: Colorectal cancer
     Dosage: SINGLE DOSE, IV BOLUS
     Route: 042
     Dates: start: 20220103, end: 20220103
  74. FLUOROURACIL [Suspect]
     Active Substance: FLUOROURACIL
     Indication: Colorectal cancer
     Dosage: SINGLE DOSE, IV DRIP
     Route: 042
     Dates: start: 20220103, end: 20220103
  75. BEVACIZUMAB [Concomitant]
     Active Substance: BEVACIZUMAB
     Indication: Colorectal cancer
     Dosage: SINGLE DOSE
     Route: 042
     Dates: start: 20211206, end: 20211206
  76. BEVACIZUMAB [Concomitant]
     Active Substance: BEVACIZUMAB
     Indication: Colorectal cancer
     Dosage: SINGLE DOSE
     Route: 042
     Dates: start: 20211221, end: 20211221
  77. BEVACIZUMAB [Concomitant]
     Active Substance: BEVACIZUMAB
     Indication: Colorectal cancer
     Dosage: SINGLE DOSE
     Route: 042
     Dates: start: 20220103, end: 20220103
  78. REGORAFENIB [Concomitant]
     Active Substance: REGORAFENIB
     Indication: Colorectal cancer
     Dosage: SINGLE DOSE
     Route: 048
     Dates: start: 20211001, end: 20211021

REACTIONS (7)
  - Septic shock [Recovered/Resolved]
  - Mucosal inflammation [Recovered/Resolved]
  - Febrile neutropenia [Unknown]
  - Acute kidney injury [Recovered/Resolved]
  - Acidosis [Recovered/Resolved]
  - Hypoglycaemia [Unknown]
  - Thrombocytopenia [Recovered/Resolved]

NARRATIVE: CASE EVENT DATE: 20211221
